FAERS Safety Report 6516543-0 (Version None)
Quarter: 2009Q4

REPORT INFORMATION
  Report Type: 
  Country: None (occurrence: None)
  Receive Date: 20091223
  Receipt Date: 20091215
  Transmission Date: 20100525
  Serious: Yes (Other)
  Sender: FDA-Public Use
  Company Number: US-JNJFOC-20060903543

PATIENT
  Sex: Female
  Weight: 84.82 kg

DRUGS (22)
  1. RISPERDAL [Suspect]
     Indication: DEPRESSION
  2. RISPERDAL [Suspect]
     Indication: POST-TRAUMATIC STRESS DISORDER
  3. ZYPREXA [Suspect]
     Indication: POST-TRAUMATIC STRESS DISORDER
     Dosage: 2 WEEKS EVERY 13 WEEKS
  4. PREDNISONE [Concomitant]
  5. FLEXERIL [Concomitant]
  6. KLONAZEPAM [Concomitant]
  7. PEPCID [Concomitant]
  8. NEURONTIN [Concomitant]
  9. TUMS [Concomitant]
  10. IMITREX [Concomitant]
  11. COMPAZINE [Concomitant]
  12. PERCOCET [Concomitant]
  13. CARISOPRODOL [Concomitant]
  14. PRILOSEC [Concomitant]
     Route: 065
  15. SERZONE [Concomitant]
     Indication: DEPRESSION
  16. ZYRTEC [Concomitant]
  17. MAXAIR [Concomitant]
  18. SINGULAIR [Concomitant]
  19. DIDRONEL [Concomitant]
  20. CENTRUM [Concomitant]
  21. CELEBREX [Concomitant]
  22. AZMACORT [Concomitant]

REACTIONS (4)
  - BLOOD PROLACTIN INCREASED [None]
  - DIABETES MELLITUS [None]
  - PANCREATITIS [None]
  - WEIGHT INCREASED [None]
